FAERS Safety Report 8601089-6 (Version None)
Quarter: 2012Q3

REPORT INFORMATION
  Report Type: 
  Country: None (occurrence: None)
  Receive Date: 20120817
  Receipt Date: 20120810
  Transmission Date: 20120928
  Serious: Yes (Other)
  Sender: FDA-Public Use
  Company Number: PHHY2012GB069496

PATIENT
  Age: 68 Year
  Sex: Female

DRUGS (2)
  1. MULTAQ [Interacting]
  2. WARFARIN SODIUM [Suspect]

REACTIONS (2)
  - INTERNATIONAL NORMALISED RATIO INCREASED [None]
  - DRUG INTERACTION [None]
